FAERS Safety Report 14635471 (Version 1)
Quarter: 2018Q1

REPORT INFORMATION
  Report Type: Spontaneous
  Country: ES (occurrence: ES)
  Receive Date: 20180314
  Receipt Date: 20180314
  Transmission Date: 20180509
  Serious: Yes (Hospitalization)
  Sender: FDA-Public Use
  Company Number: ES-TEVA-2018-ES-866760

PATIENT
  Age: 16 Year
  Sex: Female
  Weight: 55 kg

DRUGS (4)
  1. VINCRISTINE [Suspect]
     Active Substance: VINCRISTINE
     Indication: PRECURSOR B-LYMPHOBLASTIC LYMPHOMA STAGE IV
     Dosage: 2 MG EACH ADMINISTRATION
     Route: 042
     Dates: start: 20170315, end: 20170407
  2. DAUNORRUBICINA [Suspect]
     Active Substance: DAUNORUBICIN
     Indication: PRECURSOR B-LYMPHOBLASTIC LYMPHOMA STAGE IV
     Route: 042
     Dates: start: 20170315, end: 20170407
  3. PREDNISONA [Suspect]
     Active Substance: PREDNISONE
     Indication: PRECURSOR B-LYMPHOBLASTIC LYMPHOMA STAGE IV
     Route: 048
     Dates: start: 20170321, end: 20170331
  4. ASPARRAGINASA [Suspect]
     Active Substance: ASPARAGINASE
     Indication: PRECURSOR B-LYMPHOBLASTIC LYMPHOMA STAGE IV
     Route: 042
     Dates: start: 20170321, end: 20170330

REACTIONS (3)
  - Hyperammonaemia [Recovered/Resolved]
  - Hyperbilirubinaemia [Recovered/Resolved]
  - Syncope [Recovering/Resolving]

NARRATIVE: CASE EVENT DATE: 20170403
